FAERS Safety Report 10671576 (Version 2)
Quarter: 2015Q2

REPORT INFORMATION
  Report Type: Spontaneous
  Country: US (occurrence: US)
  Receive Date: 20141223
  Receipt Date: 20150415
  Transmission Date: 20150821
  Serious: Yes (Hospitalization)
  Sender: FDA-Public Use
  Company Number: US-BAYER-2014-187939

PATIENT
  Age: 25 Year
  Sex: Female
  Weight: 54.42 kg

DRUGS (1)
  1. MIRENA [Suspect]
     Active Substance: LEVONORGESTREL
     Indication: CONTRACEPTION
     Dosage: 20 MCG/24HR, CONT
     Route: 015
     Dates: start: 20120128, end: 20131203

REACTIONS (8)
  - Emotional distress [None]
  - Pain [None]
  - Procedural haemorrhage [None]
  - Uterine perforation [None]
  - Injury [None]
  - Anxiety [None]
  - Vulvovaginal dryness [None]
  - Off label use [None]

NARRATIVE: CASE EVENT DATE: 20131202
